FAERS Safety Report 26156881 (Version 1)
Quarter: 2025Q4

REPORT INFORMATION
  Report Type: Spontaneous
  Country: EU (occurrence: EU)
  Receive Date: 20251215
  Receipt Date: 20251215
  Transmission Date: 20260117
  Serious: Yes (Other)
  Sender: ALEXION PHARMACEUTICALS
  Company Number: None

PATIENT
  Age: 73 Year
  Sex: Female

DRUGS (10)
  1. SYMBICORT [Suspect]
     Active Substance: BUDESONIDE\FORMOTEROL FUMARATE DIHYDRATE
     Indication: Pulmonary sarcoidosis
     Dosage: 2-0-2, 1 DF CONTAINS 160MCG/4,5MCG
     Route: 065
     Dates: start: 202406
  2. SYMBICORT [Suspect]
     Active Substance: BUDESONIDE\FORMOTEROL FUMARATE DIHYDRATE
     Indication: Sarcoidosis of lymph node
  3. ATORVASTATIN CALCIUM [Concomitant]
     Active Substance: ATORVASTATIN CALCIUM
     Dosage: 0-0-1
  4. CALCIUM\CHOLECALCIFEROL [Concomitant]
     Active Substance: CALCIUM\CHOLECALCIFEROL
     Dosage: 0-0-1
  5. MAGNESIUM CITRATE\PYRIDOXINE [Concomitant]
     Active Substance: MAGNESIUM CITRATE\PYRIDOXINE
     Dosage: 1-0-0, 1 DOSE IS 100MG, MAX 200MG DAILY
  6. CHOLECALCIFEROL [Concomitant]
     Active Substance: CHOLECALCIFEROL
     Dosage: 2 DROPS EVERY EVENING
  7. DIOSMIN\HESPERIDIN [Concomitant]
     Active Substance: DIOSMIN\HESPERIDIN
     Dosage: 1-0-0
  8. Esoprex [Concomitant]
     Dosage: 1-0-0
  9. ASCORBIC ACID [Concomitant]
     Active Substance: ASCORBIC ACID
     Dosage: 1-0-0
  10. Magnesium b6 [Concomitant]
     Dosage: 1 DOSE 50MG/1,4MG, 0-0-1

REACTIONS (6)
  - Seizure [Unknown]
  - Dysphonia [Unknown]
  - Oropharyngeal pain [Unknown]
  - Secretion discharge [Unknown]
  - Tremor [Unknown]
  - Conjunctivitis [Unknown]
